FAERS Safety Report 8251817-7 (Version None)
Quarter: 2012Q1

REPORT INFORMATION
  Report Type: 
  Country: None (occurrence: None)
  Receive Date: 20120321
  Receipt Date: 20101106
  Transmission Date: 20120608
  Serious: Yes (Other)
  Sender: FDA-Public Use
  Company Number: PHHY2010US71986

PATIENT
  Sex: Male

DRUGS (3)
  1. VALTURNA [Suspect]
     Indication: HYPERTENSION
     Dosage: 300/320 MG, ONCE A DAY
     Dates: start: 20100901, end: 20100927
  2. LIPITOR [Concomitant]
  3. AMLODIPINE [Concomitant]

REACTIONS (3)
  - DIZZINESS [None]
  - BLOOD PRESSURE INADEQUATELY CONTROLLED [None]
  - HYPOTENSION [None]
